FAERS Safety Report 13911831 (Version 1)
Quarter: 2017Q3

REPORT INFORMATION
  Report Type: Spontaneous
  Country: US (occurrence: US)
  Receive Date: 20170827
  Receipt Date: 20170827
  Transmission Date: 20171127
  Serious: Yes (Other)
  Sender: FDA-Public Use
  Company Number: None

PATIENT
  Age: 4 Month
  Sex: Female
  Weight: 6.75 kg

DRUGS (2)
  1. DESITIN RAPID RELIEF CREAMY DIAPER RASH [Suspect]
     Active Substance: ZINC OXIDE
     Indication: DERMATITIS DIAPER
     Route: 061
     Dates: start: 20170516, end: 20170516
  2. DESITIN RAPID RELIEF CREAMY DIAPER RASH [Suspect]
     Active Substance: ZINC OXIDE
     Indication: PROPHYLAXIS
     Route: 061
     Dates: start: 20170516, end: 20170516

REACTIONS (6)
  - Middle insomnia [None]
  - Crying [None]
  - Product substitution issue [None]
  - Vulvovaginal rash [None]
  - Hypersensitivity [None]
  - Product formulation issue [None]

NARRATIVE: CASE EVENT DATE: 20170816
